FAERS Safety Report 4326112-9 (Version None)
Quarter: 2004Q1

REPORT INFORMATION
  Report Type: 
  Country: None (occurrence: None)
  Receive Date: 20040323
  Receipt Date: 20040217
  Transmission Date: 20041129
  Serious: No
  Sender: FDA-Public Use
  Company Number: US_0402100889

PATIENT
  Age: 60 Year
  Sex: Male

DRUGS (1)
  1. CIALIS [Suspect]
     Indication: ERECTILE DYSFUNCTION
     Dosage: 20 MG/ EVERY OTHER DAY
     Dates: start: 20040214

REACTIONS (3)
  - DRUG INEFFECTIVE [None]
  - INTENTIONAL OVERDOSE [None]
  - THERAPEUTIC RESPONSE DECREASED [None]
